FAERS Safety Report 6822799-7 (Version None)
Quarter: 2010Q3

REPORT INFORMATION
  Report Type: 
  Country: None (occurrence: None)
  Receive Date: 20100708
  Receipt Date: 20100702
  Transmission Date: 20110219
  Serious: Yes (Death, Hospitalization, Other)
  Sender: FDA-Public Use
  Company Number: FR-CELGENEUS-056-50794-10070187

PATIENT

DRUGS (4)
  1. VIDAZA [Suspect]
     Route: 065
  2. VIDAZA [Suspect]
     Route: 065
  3. VIDAZA [Suspect]
     Dosage: { 75 MG/M2
     Route: 065
  4. VALPROIC ACID [Concomitant]
     Indication: PRODUCT USED FOR UNKNOWN INDICATION
     Route: 065

REACTIONS (4)
  - DEATH [None]
  - FEBRILE NEUTROPENIA [None]
  - INFECTION [None]
  - NO THERAPEUTIC RESPONSE [None]
